FAERS Safety Report 10120910 (Version 1)
Quarter: 2014Q2

REPORT INFORMATION
  Report Type: Spontaneous
  Country: DE (occurrence: DE)
  Receive Date: 20140425
  Receipt Date: 20140425
  Transmission Date: 20141212
  Serious: Yes (Other)
  Sender: FDA-Public Use
  Company Number: DE-TEVA-477448GER

PATIENT
  Age: 57 Year
  Sex: Male
  Weight: 99 kg

DRUGS (1)
  1. SIMVASTATIN [Suspect]
     Indication: CORONARY ARTERY DISEASE
     Dosage: 40 MILLIGRAM DAILY;
     Dates: start: 20131213, end: 201403

REACTIONS (2)
  - Abasia [Not Recovered/Not Resolved]
  - Myalgia [Not Recovered/Not Resolved]
